FAERS Safety Report 9920885 (Version 1)
Quarter: 2014Q1

REPORT INFORMATION
  Report Type: Report from Study
  Country: US (occurrence: US)
  Receive Date: 20140225
  Receipt Date: 20140225
  Transmission Date: 20141002
  Serious: Yes (Other)
  Sender: FDA-Public Use
  Company Number: US-ROCHE-1333498

PATIENT
  Sex: Female

DRUGS (12)
  1. LUCENTIS [Suspect]
     Indication: VENOUS OCCLUSION
     Route: 050
     Dates: start: 20100826
  2. LUCENTIS [Suspect]
     Indication: CYSTOID MACULAR OEDEMA
  3. AVASTIN [Suspect]
     Indication: RETINAL VEIN OCCLUSION
     Route: 050
     Dates: start: 20110228
  4. AVASTIN [Suspect]
     Indication: CYSTOID MACULAR OEDEMA
  5. PRAVASTATIN SODIUM [Concomitant]
     Route: 065
     Dates: start: 20110331
  6. LEVOTHYROXINE SODIUM [Concomitant]
     Route: 065
     Dates: start: 20100326
  7. COD LIVER OIL [Concomitant]
     Route: 065
     Dates: start: 20100326
  8. EVISTA [Concomitant]
     Route: 065
     Dates: start: 20100326
  9. FISH OIL [Concomitant]
     Route: 065
     Dates: start: 20100326
  10. DILTIAZEM ER [Concomitant]
     Route: 065
     Dates: start: 20100326
  11. ECOTRIN [Concomitant]
     Route: 065
     Dates: start: 20100326
  12. LUTEIN [Concomitant]
     Route: 065

REACTIONS (4)
  - Retinal oedema [Unknown]
  - Vision blurred [Unknown]
  - Drug ineffective [Unknown]
  - Pain [Unknown]
